FAERS Safety Report 13745656 (Version 1)
Quarter: 2017Q3

REPORT INFORMATION
  Report Type: Spontaneous
  Country: US (occurrence: US)
  Receive Date: 20170712
  Receipt Date: 20170712
  Transmission Date: 20171127
  Serious: No
  Sender: FDA-Public Use
  Company Number: None

PATIENT
  Age: 74 Year
  Sex: Female
  Weight: 54.48 kg

DRUGS (9)
  1. ZOLEDRONIC ACID, GENERIC FOR RECLAST [Suspect]
     Active Substance: ZOLEDRONIC ACID
     Indication: OSTEOPOROSIS
     Dosage: ?          QUANTITY:.IST ANY RELEVANT TESTS O;?
     Route: 042
     Dates: start: 20160606, end: 20160606
  2. TYLENOL [Concomitant]
     Active Substance: ACETAMINOPHEN
  3. DAILY VITAMIN [Concomitant]
     Active Substance: VITAMINS
  4. EXCEDRIN [Concomitant]
     Active Substance: ACETAMINOPHEN\ASPIRIN\CAFFEINE
  5. ATENOLOL. [Concomitant]
     Active Substance: ATENOLOL
  6. PANTOPRAZOLE [Concomitant]
     Active Substance: PANTOPRAZOLE
  7. VITAMIN D [Concomitant]
     Active Substance: CHOLECALCIFEROL
  8. MAGNESIUM [Concomitant]
     Active Substance: MAGNESIUM
  9. STOOL SOFTERNER [Concomitant]

REACTIONS (5)
  - Abdominal pain [None]
  - Pain [None]
  - Pyrexia [None]
  - Influenza like illness [None]
  - Headache [None]

NARRATIVE: CASE EVENT DATE: 20170616
